FAERS Safety Report 8144986-0 (Version None)
Quarter: 2012Q1

REPORT INFORMATION
  Report Type: 
  Country: None (occurrence: None)
  Receive Date: 20120217
  Receipt Date: 20120214
  Transmission Date: 20120608
  Serious: Yes (Life-Threatening, Hospitalization)
  Sender: FDA-Public Use
  Company Number: US-BAYER-2011-079621

PATIENT
  Age: 27 Year
  Sex: Female
  Weight: 90.703 kg

DRUGS (16)
  1. YASMIN [Suspect]
  2. DARVOCET-N 50 [Concomitant]
  3. SKELAXIN [Concomitant]
  4. ACETAMINOPHEN [Concomitant]
  5. IBUPROFEN [Concomitant]
     Route: 048
  6. TRIMDOL [Concomitant]
  7. EXCEDRIN [CAFFEINE,PARACETAMOL] [Concomitant]
     Route: 048
  8. TOPAMAX [Concomitant]
  9. ULTRAM [Concomitant]
  10. CARISOPRODOL [Concomitant]
  11. HALOBETASOL PROPIONATE [Concomitant]
  12. RELAFEN [Concomitant]
  13. YAZ [Suspect]
  14. DROSPIRENONE AND ETHINYL ESTRADIOL [Suspect]
  15. NASONEX [Concomitant]
  16. TRENTAL [Concomitant]

REACTIONS (5)
  - ANHEDONIA [None]
  - ANXIETY [None]
  - INJURY [None]
  - DEEP VEIN THROMBOSIS [None]
  - PAIN [None]
